FAERS Safety Report 20921198 (Version 1)
Quarter: 2022Q2

REPORT INFORMATION
  Report Type: Spontaneous
  Country: US (occurrence: None)
  Receive Date: 20220606
  Receipt Date: 20220606
  Transmission Date: 20220721
  Serious: Yes (Disabling)
  Sender: FDA-Public Use
  Company Number: None

PATIENT
  Age: 81 Year
  Sex: Female
  Weight: 71.21 kg

DRUGS (10)
  1. DORZOLAMIDE HYDROCHLORIDE [Suspect]
     Active Substance: DORZOLAMIDE HYDROCHLORIDE
     Indication: Glaucoma
     Dosage: FREQUENCY : TWICE A DAY;?
     Route: 031
     Dates: start: 20210815, end: 20210819
  2. DOXAZOSIN [Concomitant]
     Active Substance: DOXAZOSIN MESYLATE
  3. POTASSIUM CHLORIDE [Concomitant]
     Active Substance: POTASSIUM CHLORIDE
  4. Ketorolac Tromethamine 04% Ophthalmic Solution [Concomitant]
  5. FENOFIBRATE [Concomitant]
     Active Substance: FENOFIBRATE
  6. SYNTHROID [Concomitant]
     Active Substance: LEVOTHYROXINE SODIUM
  7. CALCIUM [Concomitant]
     Active Substance: CALCIUM
  8. REFRESH DIGITAL PF [Concomitant]
     Active Substance: CARBOXYMETHYLCELLULOSE SODIUM\GLYCERIN\POLYSORBATE 80
  9. INDAPAMIDE [Concomitant]
     Active Substance: INDAPAMIDE
  10. METOPROLOL [Concomitant]
     Active Substance: METOPROLOL

REACTIONS (5)
  - Headache [None]
  - Conjunctivitis [None]
  - Dry eye [None]
  - Eye irritation [None]
  - Ocular hyperaemia [None]

NARRATIVE: CASE EVENT DATE: 20210817
